FAERS Safety Report 5963579-4 (Version None)
Quarter: 2008Q4

REPORT INFORMATION
  Report Type: 
  Country: None (occurrence: None)
  Receive Date: 20081124
  Receipt Date: 20071012
  Transmission Date: 20090506
  Serious: No
  Sender: FDA-Public Use
  Company Number: US-BAYER-US-2007-039192

PATIENT
  Age: 64 Year
  Sex: Female

DRUGS (5)
  1. MAGNEVIST [Suspect]
     Indication: NUCLEAR MAGNETIC RESONANCE IMAGING BRAIN
     Dosage: UNIT DOSE: 20 ML
     Route: 042
     Dates: start: 20071010, end: 20071010
  2. PREDNISONE TAB [Concomitant]
  3. IMURAN [Concomitant]
     Dosage: UNIT DOSE: 150 MG
  4. FOSAMAX [Concomitant]
  5. CENTRUM [Concomitant]

REACTIONS (3)
  - FLUSHING [None]
  - RASH [None]
  - URTICARIA [None]
